FAERS Safety Report 18434052 (Version 1)
Quarter: 2020Q4

REPORT INFORMATION
  Report Type: Spontaneous
  Country: JP (occurrence: JP)
  Receive Date: 20201027
  Receipt Date: 20201027
  Transmission Date: 20210114
  Serious: Yes (Other)
  Sender: FDA-Public Use
  Company Number: JP-TEVA-2020-JP-1843146

PATIENT
  Age: 8 Decade
  Sex: Male

DRUGS (5)
  1. BENDAMUSTINE HYDROCHLORIDE. [Suspect]
     Active Substance: BENDAMUSTINE HYDROCHLORIDE
     Indication: B-CELL LYMPHOMA
     Dosage: (6 CYCLES)
     Route: 042
  2. R CHOP [Concomitant]
     Active Substance: CYCLOPHOSPHAMIDE\DOXORUBICIN\PREDNISONE\RITUXIMAB\VINCRISTINE
     Indication: DIFFUSE LARGE B-CELL LYMPHOMA
     Route: 065
  3. RITUXIMAB. [Suspect]
     Active Substance: RITUXIMAB
     Dosage: (MAINTENANCE THERAPY)
     Route: 041
  4. ENTECAVIR. [Concomitant]
     Active Substance: ENTECAVIR
     Indication: PROPHYLAXIS
     Route: 048
  5. RITUXIMAB. [Suspect]
     Active Substance: RITUXIMAB
     Indication: B-CELL LYMPHOMA
     Dosage: (6 CYCLES)
     Route: 041

REACTIONS (1)
  - Hepatic cancer [Recovered/Resolved]
